FAERS Safety Report 19779560 (Version 1)
Quarter: 2021Q3

REPORT INFORMATION
  Report Type: Spontaneous
  Country: JP (occurrence: JP)
  Receive Date: 20210902
  Receipt Date: 20210902
  Transmission Date: 20211014
  Serious: Yes (Other)
  Sender: FDA-Public Use
  Company Number: JP-ASTRAZENECA-2021A703724

PATIENT
  Age: 46 Year
  Sex: Female

DRUGS (2)
  1. FASLODEX [Suspect]
     Active Substance: FULVESTRANT
     Indication: BREAST CANCER FEMALE
     Dosage: UNKNOWN
     Route: 030
  2. OTHER ANTITUMOR AGENTS [Concomitant]
     Active Substance: UNSPECIFIED INGREDIENT
     Indication: BREAST CANCER FEMALE

REACTIONS (2)
  - Malignant neoplasm progression [Unknown]
  - Therapy partial responder [Unknown]
